FAERS Safety Report 25686166 (Version 1)
Quarter: 2025Q3

REPORT INFORMATION
  Report Type: Spontaneous
  Country: BR (occurrence: BR)
  Receive Date: 20250815
  Receipt Date: 20250815
  Transmission Date: 20251021
  Serious: Yes (Hospitalization)
  Sender: GE HEALTHCARE
  Company Number: BR-GE HEALTHCARE-2025CSU011078

PATIENT
  Age: 51 Year
  Sex: Male
  Weight: 71 kg

DRUGS (1)
  1. OMNIPAQUE [Suspect]
     Active Substance: IOHEXOL
     Indication: Computerised tomogram abdomen
     Route: 042
     Dates: start: 20250804, end: 20250804

REACTIONS (4)
  - Aphthous ulcer [Recovering/Resolving]
  - Pyrexia [Recovering/Resolving]
  - Chills [Recovering/Resolving]
  - Pain [Recovering/Resolving]

NARRATIVE: CASE EVENT DATE: 20250804
